FAERS Safety Report 6761945-0 (Version None)
Quarter: 2010Q2

REPORT INFORMATION
  Report Type: 
  Country: None (occurrence: None)
  Receive Date: 20100609
  Receipt Date: 20091023
  Transmission Date: 20101027
  Serious: Yes (Other)
  Sender: FDA-Public Use
  Company Number: US-KINGPHARMUSA00001-K200901314

PATIENT
  Sex: Female
  Weight: 86.168 kg

DRUGS (2)
  1. CORTISPORIN [Suspect]
     Indication: EAR INFECTION
     Dosage: 2 GTT, QID
     Route: 001
     Dates: start: 20090928, end: 20091001
  2. ANALGESICS [Concomitant]
     Indication: EAR PAIN
     Dosage: UNK

REACTIONS (2)
  - EAR CONGESTION [None]
  - HEARING IMPAIRED [None]
